FAERS Safety Report 22056615 (Version 3)
Quarter: 2023Q1

REPORT INFORMATION
  Report Type: Spontaneous
  Country: EG (occurrence: EG)
  Receive Date: 20230302
  Receipt Date: 20230314
  Transmission Date: 20230418
  Serious: Yes (Hospitalization, Other)
  Sender: FDA-Public Use
  Company Number: EG-NOVOPROD-1026655

PATIENT
  Age: 128 Month
  Sex: Female
  Weight: 30 kg

DRUGS (5)
  1. LANTUS [Concomitant]
     Active Substance: INSULIN GLARGINE
     Indication: Type 1 diabetes mellitus
     Dosage: 13 IU, QD (AT NIGHT), FROM 2.5 YEARS
     Route: 058
  2. ACTRAPID [Suspect]
     Active Substance: INSULIN HUMAN
     Indication: Type 1 diabetes mellitus
     Dosage: 5 IU/MEAL (EXCEPT DINNER DOSE )
     Route: 058
  3. ACTRAPID [Suspect]
     Active Substance: INSULIN HUMAN
     Dosage: 13 IU/MEAL (EXCEPT DINNER DOSE )
     Route: 058
     Dates: end: 20230124
  4. ACTRAPID [Suspect]
     Active Substance: INSULIN HUMAN
     Dosage: 8 IU/MEAL (EXCEPT DINNER DOSE )
     Route: 058
  5. HUMALOG [Suspect]
     Active Substance: INSULIN LISPRO
     Indication: Product used for unknown indication
     Dosage: UNK

REACTIONS (8)
  - Urine ketone body [Unknown]
  - Blood glucose increased [Recovered/Resolved]
  - Colitis [Recovered/Resolved]
  - Breath odour [Recovered/Resolved]
  - Blood glucose decreased [Unknown]
  - Injection site pain [Not Recovered/Not Resolved]
  - Injection site discolouration [Not Recovered/Not Resolved]
  - Wrong technique in product usage process [Unknown]

NARRATIVE: CASE EVENT DATE: 20230101
